FAERS Safety Report 13310341 (Version 5)
Quarter: 2021Q2

REPORT INFORMATION
  Report Type: Spontaneous
  Country: US (occurrence: US)
  Receive Date: 20170309
  Receipt Date: 20210527
  Transmission Date: 20210716
  Serious: Yes (Other)
  Sender: FDA-Public Use
  Company Number: US-JNJFOC-20170202581

PATIENT
  Age: 13 Year
  Sex: Male

DRUGS (2)
  1. RISPERDAL [Suspect]
     Active Substance: RISPERIDONE
     Indication: DEPRESSION
     Dosage: 5 MG ?2 MG
     Route: 048
     Dates: start: 20051201, end: 200604
  2. RISPERDAL [Suspect]
     Active Substance: RISPERIDONE
     Indication: ANXIETY
     Route: 048
     Dates: end: 2006

REACTIONS (4)
  - Emotional disorder [Unknown]
  - Hyperprolactinaemia [Unknown]
  - Obesity [Recovering/Resolving]
  - Gynaecomastia [Unknown]

NARRATIVE: CASE EVENT DATE: 200603
